FAERS Safety Report 5633163-0 (Version None)
Quarter: 2008Q1

REPORT INFORMATION
  Report Type: 
  Country: None (occurrence: None)
  Receive Date: 20080215
  Receipt Date: 20080205
  Transmission Date: 20080703
  Serious: Yes (Death)
  Sender: FDA-Public Use
  Company Number: 230003J08COL

PATIENT
  Age: 53 Year
  Sex: Male

DRUGS (5)
  1. REBIF [Suspect]
     Indication: DRUG ADMINISTRATION ERROR
     Dosage: 44 MCG, 3 IN 1 WEEKS, SUBCUTANEOUS; 44 MCG, 3 IN 1 WEEKS, SUBCUTANEOUS
     Route: 058
     Dates: start: 20070801, end: 20071101
  2. REBIF [Suspect]
     Indication: DRUG ADMINISTRATION ERROR
     Dosage: 44 MCG, 3 IN 1 WEEKS, SUBCUTANEOUS; 44 MCG, 3 IN 1 WEEKS, SUBCUTANEOUS
     Route: 058
     Dates: start: 20060901, end: 20071224
  3. REBIF [Suspect]
  4. RILUZOLE [Concomitant]
  5. FLUOXETINE /00724401/ [Concomitant]

REACTIONS (5)
  - CARDIO-RESPIRATORY ARREST [None]
  - DEPRESSION [None]
  - DYSPHAGIA [None]
  - ORAL INTAKE REDUCED [None]
  - REFUSAL OF TREATMENT BY PATIENT [None]
